FAERS Safety Report 7992293-9 (Version None)
Quarter: 2011Q4

REPORT INFORMATION
  Report Type: 
  Country: None (occurrence: None)
  Receive Date: 20111219
  Receipt Date: 20101214
  Transmission Date: 20120403
  Serious: No
  Sender: FDA-Public Use
  Company Number: US-ASTRAZENECA-2010SE61519

PATIENT
  Sex: Male

DRUGS (2)
  1. CRESTOR [Suspect]
     Route: 048
     Dates: end: 20091201
  2. CRESTOR [Suspect]
     Route: 048
     Dates: start: 20101201

REACTIONS (2)
  - DRUG DOSE OMISSION [None]
  - LOW DENSITY LIPOPROTEIN ABNORMAL [None]
